FAERS Safety Report 19783855 (Version 1)
Quarter: 2021Q3

REPORT INFORMATION
  Report Type: Spontaneous
  Country: US (occurrence: US)
  Receive Date: 20210902
  Receipt Date: 20210902
  Transmission Date: 20211014
  Serious: No
  Sender: FDA-Public Use
  Company Number: None

PATIENT
  Age: 75 Year
  Sex: Female
  Weight: 90.45 kg

DRUGS (2)
  1. DEFINITY [Suspect]
     Active Substance: PERFLUTREN
     Indication: STRESS ECHOCARDIOGRAM
     Dosage: ?          OTHER FREQUENCY:ONCE;?
     Route: 042
     Dates: start: 20210902, end: 20210902
  2. DEFINITY [Concomitant]
     Active Substance: PERFLUTREN
     Dates: start: 20210902, end: 20210902

REACTIONS (1)
  - Back pain [None]

NARRATIVE: CASE EVENT DATE: 20210901
